FAERS Safety Report 9243885 (Version 1)
Quarter: 2013Q1

REPORT INFORMATION
  Report Type: Spontaneous
  Country: US (occurrence: None)
  Receive Date: 20121123
  Receipt Date: 20121123
  Transmission Date: 20140127
  Serious: No
  Sender: FDA-Public Use
  Company Number: 362913

PATIENT
  Age: 63 Year
  Sex: Female

DRUGS (6)
  1. VICTOZA [Suspect]
     Indication: TYPE 1 DIABETES MELLITUS
     Route: 058
     Dates: start: 20120914, end: 20120919
  2. ABILIFY (ARIPIPRAZOLE) [Concomitant]
  3. AMBIEN (ZOLPIDEM TARTRATE) [Concomitant]
  4. DEPAKOTE (VALPROATE SEMISODIUM) [Concomitant]
  5. SIMVASTATIN (SIMVASTATIN) [Concomitant]
  6. ZOLOFT (SERTRALINE HYDROCHLORIDE) [Concomitant]

REACTIONS (3)
  - Amnesia [None]
  - Decreased appetite [None]
  - Device malfunction [None]
